FAERS Safety Report 11588688 (Version 1)
Quarter: 2015Q4

REPORT INFORMATION
  Report Type: Spontaneous
  Country: DE (occurrence: DE)
  Receive Date: 20151002
  Receipt Date: 20151002
  Transmission Date: 20160304
  Serious: Yes (Disabling, Other)
  Sender: FDA-Public Use
  Company Number: DE-WATSON-2015-20528

PATIENT
  Age: 40 Year
  Sex: Female
  Weight: 96 kg

DRUGS (1)
  1. LEVOFLOXACIN (UNKNOWN) [Suspect]
     Active Substance: LEVOFLOXACIN
     Indication: URETHRITIS
     Dosage: 500 MG, DAILY
     Route: 048
     Dates: start: 201409

REACTIONS (2)
  - Nausea [Unknown]
  - Tendon pain [Not Recovered/Not Resolved]

NARRATIVE: CASE EVENT DATE: 201409
